FAERS Safety Report 7300484-5 (Version None)
Quarter: 2011Q1

REPORT INFORMATION
  Report Type: 
  Country: None (occurrence: None)
  Receive Date: 20110217
  Receipt Date: 20110208
  Transmission Date: 20110831
  Serious: No
  Sender: FDA-Public Use
  Company Number: US-BIOGENIDEC-2011BI004868

PATIENT
  Age: 38 Year
  Sex: Female

DRUGS (1)
  1. AVONEX [Suspect]
     Indication: MULTIPLE SCLEROSIS
     Route: 030
     Dates: start: 20090225, end: 20110131

REACTIONS (7)
  - INFLUENZA LIKE ILLNESS [None]
  - INCREASED APPETITE [None]
  - WEIGHT INCREASED [None]
  - NASAL CONGESTION [None]
  - WHITE BLOOD CELL COUNT DECREASED [None]
  - INJECTION SITE PAIN [None]
  - OROPHARYNGEAL PAIN [None]
